FAERS Safety Report 4633030-5 (Version None)
Quarter: 2005Q2

REPORT INFORMATION
  Report Type: 
  Country: None (occurrence: None)
  Receive Date: 20050412
  Receipt Date: 20050401
  Transmission Date: 20051028
  Serious: Yes (Hospitalization)
  Sender: FDA-Public Use
  Company Number: US-MERCK-0504USA01213

PATIENT
  Age: 85 Year
  Sex: Female

DRUGS (3)
  1. PRINIVIL [Suspect]
     Route: 048
     Dates: end: 20040301
  2. LASIX [Suspect]
     Indication: OEDEMA
     Route: 065
     Dates: start: 20040820
  3. LASIX [Suspect]
     Route: 065
     Dates: end: 20040301

REACTIONS (6)
  - ANGINA PECTORIS [None]
  - ARTHRALGIA [None]
  - ARTHRITIS BACTERIAL [None]
  - BLOOD CREATININE INCREASED [None]
  - DYSPNOEA EXERTIONAL [None]
  - HEADACHE [None]
